FAERS Safety Report 6422029-4 (Version None)
Quarter: 2009Q4

REPORT INFORMATION
  Report Type: 
  Country: None (occurrence: None)
  Receive Date: 20091030
  Receipt Date: 20091019
  Transmission Date: 20100525
  Serious: Yes (Hospitalization)
  Sender: FDA-Public Use
  Company Number: US-ELI_LILLY_AND_COMPANY-US200910004408

PATIENT
  Age: 50 Year
  Sex: Male

DRUGS (2)
  1. ZYPREXA [Suspect]
     Dosage: 1 D/F, UNK
  2. ZYPREXA [Suspect]
     Dosage: 10 MG, 4/D

REACTIONS (2)
  - HYPONATRAEMIA [None]
  - OVERDOSE [None]
